FAERS Safety Report 8923543 (Version 1)
Quarter: 2012Q4

REPORT INFORMATION
  Report Type: 
  Country: US (occurrence: US)
  Receive Date: 20121123
  Receipt Date: 20121123
  Transmission Date: 20130627
  Serious: Yes (Other)
  Sender: FDA-Public Use
  Company Number: US-PFIZER INC-2012291636

PATIENT
  Sex: Male

DRUGS (7)
  1. LYRICA [Suspect]
     Indication: NERVE COMPRESSION
     Dosage: UNK
     Dates: start: 20121116
  2. METFORMIN HCL [Interacting]
     Indication: DIABETES
     Dosage: UNK
  3. GLIPIZIDE [Interacting]
     Indication: DIABETES
     Dosage: UNK
  4. EXFORGE [Interacting]
     Indication: BLOOD PRESSURE HIGH
     Dosage: UNK
  5. NIASPAN [Interacting]
     Dosage: UNK
  6. LEVEMIR [Interacting]
     Indication: DIABETES
     Dosage: UNK
  7. VICTOZA [Interacting]
     Indication: DIABETES
     Dosage: UNK

REACTIONS (3)
  - Drug interaction [Unknown]
  - Bedridden [Unknown]
  - Fatigue [Unknown]
